FAERS Safety Report 4277528-0 (Version None)
Quarter: 2004Q1

REPORT INFORMATION
  Report Type: 
  Country: None (occurrence: None)
  Receive Date: 20040121
  Receipt Date: 20031003
  Transmission Date: 20041129
  Serious: Yes (Hospitalization)
  Sender: FDA-Public Use
  Company Number: RB-162-2003

PATIENT
  Age: 33 Year
  Sex: Female
  Weight: 107.9561 kg

DRUGS (5)
  1. SUBOXONE [Suspect]
     Indication: DRUG DEPENDENCE
     Dosage: 8 MG DAILY SL
     Route: 060
     Dates: start: 20030807
  2. METOCLOPRAMIDE [Suspect]
     Dosage: 10 MG DAILY PO
     Route: 048
  3. ATIVAN [Concomitant]
  4. PROZAC [Concomitant]
  5. REGLAN [Concomitant]

REACTIONS (3)
  - NERVOUS SYSTEM DISORDER [None]
  - RESTLESS LEGS SYNDROME [None]
  - RESTLESSNESS [None]
